FAERS Safety Report 4477224-0 (Version None)
Quarter: 2004Q4

REPORT INFORMATION
  Report Type: 
  Country: None (occurrence: None)
  Receive Date: 20041018
  Receipt Date: 20041011
  Transmission Date: 20050328
  Serious: Yes (Hospitalization)
  Sender: FDA-Public Use
  Company Number: US-MERCK-0410USA01725

PATIENT
  Age: 77 Year
  Sex: Male

DRUGS (3)
  1. [THERAPY UNSPECIFIED] [Concomitant]
     Indication: HYPERTENSION
     Route: 065
  2. DILANTIN [Concomitant]
     Route: 065
  3. VIOXX [Suspect]
     Indication: ARTHRITIS
     Route: 048
     Dates: start: 20000101, end: 20040101

REACTIONS (2)
  - CARDIAC DISORDER [None]
  - CEREBROVASCULAR ACCIDENT [None]
